FAERS Safety Report 7348898-1 (Version None)
Quarter: 2011Q1

REPORT INFORMATION
  Report Type: 
  Country: None (occurrence: None)
  Receive Date: 20110314
  Receipt Date: 20110307
  Transmission Date: 20110831
  Serious: Yes (Other)
  Sender: FDA-Public Use
  Company Number: US-SANOFI-AVENTIS-2011SA014149

PATIENT
  Age: 69 Year
  Sex: Female

DRUGS (1)
  1. LOVENOX [Suspect]
     Indication: PULMONARY EMBOLISM
     Route: 065

REACTIONS (4)
  - TREMOR [None]
  - DECREASED APPETITE [None]
  - HALLUCINATION [None]
  - ANXIETY [None]
